FAERS Safety Report 5782718-1 (Version None)
Quarter: 2008Q2

REPORT INFORMATION
  Report Type: 
  Country: None (occurrence: None)
  Receive Date: 20080619
  Receipt Date: 20080604
  Transmission Date: 20081010
  Serious: Yes (Hospitalization)
  Sender: FDA-Public Use
  Company Number: 2008001303

PATIENT
  Sex: Female
  Weight: 127 kg

DRUGS (3)
  1. ERLOTINIB (ERLOTINIB) (TABLET) (ERLOTINIB) [Suspect]
     Indication: LUNG ADENOCARCINOMA
     Dosage: (150 MG, QD), ORAL
     Route: 048
     Dates: start: 20080521
  2. PACLITAXEL [Suspect]
     Dosage: (200 MG/M2, DAY 1 X 6 CYCLES), INTRAVENOUS
     Route: 042
     Dates: start: 20080521
  3. CARBOPLATIN [Suspect]
     Dosage: (6, DAY 1 X 6 CYCLES), INTRAVENOUS
     Route: 042
     Dates: start: 20080521

REACTIONS (5)
  - ASTHENIA [None]
  - DEHYDRATION [None]
  - GRANULOCYTES ABNORMAL [None]
  - NEUTROPHIL COUNT DECREASED [None]
  - PLATELET COUNT DECREASED [None]
